FAERS Safety Report 11863454 (Version 1)
Quarter: 2015Q4

REPORT INFORMATION
  Report Type: Report from Study
  Country: US (occurrence: US)
  Receive Date: 20151223
  Receipt Date: 20151223
  Transmission Date: 20160305
  Serious: No
  Sender: FDA-Public Use
  Company Number: US-BIOGEN-2015BI005857

PATIENT
  Sex: Female

DRUGS (1)
  1. TYSABRI [Suspect]
     Active Substance: NATALIZUMAB
     Indication: MULTIPLE SCLEROSIS
     Dosage: INFUSED OVER 1 HOUR
     Route: 042
     Dates: start: 20130916, end: 20150121

REACTIONS (12)
  - Swollen tongue [Unknown]
  - Rash [Not Recovered/Not Resolved]
  - Flushing [Unknown]
  - Pruritus generalised [Not Recovered/Not Resolved]
  - Skin exfoliation [Unknown]
  - Weight increased [Not Recovered/Not Resolved]
  - Emotional distress [Unknown]
  - Dysphagia [Unknown]
  - Fluid retention [Unknown]
  - Hypersensitivity [Not Recovered/Not Resolved]
  - Musculoskeletal disorder [Unknown]
  - Eye swelling [Not Recovered/Not Resolved]
